FAERS Safety Report 25469905 (Version 1)
Quarter: 2025Q2

REPORT INFORMATION
  Report Type: Spontaneous
  Country: US (occurrence: US)
  Receive Date: 20250623
  Receipt Date: 20250623
  Transmission Date: 20250716
  Serious: No
  Sender: BOEHRINGER INGELHEIM
  Company Number: US-BoehringerIngelheim-2025-BI-078576

PATIENT
  Age: 81 Year
  Sex: Female

DRUGS (4)
  1. JARDIANCE [Suspect]
     Active Substance: EMPAGLIFLOZIN
     Indication: Product used for unknown indication
  2. INSULIN LISPRO [Suspect]
     Active Substance: INSULIN LISPRO
     Indication: Diabetes mellitus
  3. HUMALOG [Suspect]
     Active Substance: INSULIN LISPRO
     Indication: Diabetes mellitus
  4. SOLOSTAR [Concomitant]
     Active Substance: DEVICE
     Indication: Diabetes mellitus

REACTIONS (7)
  - Incorrect dose administered [Unknown]
  - Thermal burn [Unknown]
  - Blister [Unknown]
  - Haemorrhage [Unknown]
  - Infection [Unknown]
  - Drug ineffective [Unknown]
  - Rash [Unknown]
